FAERS Safety Report 4419904-9 (Version None)
Quarter: 2004Q3

REPORT INFORMATION
  Report Type: 
  Country: None (occurrence: None)
  Receive Date: 20040805
  Receipt Date: 20040805
  Transmission Date: 20050211
  Serious: Yes (Hospitalization)
  Sender: FDA-Public Use
  Company Number: None

PATIENT
  Age: 79 Year
  Sex: Female
  Weight: 71.7 kg

DRUGS (2)
  1. ASPIRIN [Suspect]
     Indication: CORONARY ARTERY DISEASE
     Dosage: 325 MG DAILY ORAL
     Route: 048
  2. NITROGLYCERIN SL [Concomitant]

REACTIONS (4)
  - CATHETERISATION CARDIAC ABNORMAL [None]
  - HAEMATOCHEZIA [None]
  - IRON DEFICIENCY [None]
  - MICROCYTIC ANAEMIA [None]
